FAERS Safety Report 13688913 (Version 1)
Quarter: 2017Q2

REPORT INFORMATION
  Report Type: Spontaneous
  Country: JP (occurrence: JP)
  Receive Date: 20170626
  Receipt Date: 20170626
  Transmission Date: 20170830
  Serious: Yes (Other)
  Sender: FDA-Public Use
  Company Number: JP-MYLANLABS-2017M1037587

PATIENT

DRUGS (4)
  1. FUROSEMIDE. [Suspect]
     Active Substance: FUROSEMIDE
     Dosage: UNK
  2. CARVEDILOL. [Suspect]
     Active Substance: CARVEDILOL
     Dosage: UNK
  3. SPIRONOLACTONE. [Suspect]
     Active Substance: SPIRONOLACTONE
     Dosage: UNK
  4. TANATRIL [Suspect]
     Active Substance: IMIDAPRIL
     Indication: CARDIAC FAILURE
     Dosage: UNK

REACTIONS (3)
  - Weight decreased [Unknown]
  - Cardiac ventricular thrombosis [Recovering/Resolving]
  - Haematocrit increased [Unknown]
